FAERS Safety Report 8490803-9 (Version None)
Quarter: 2012Q3

REPORT INFORMATION
  Report Type: 
  Country: None (occurrence: None)
  Receive Date: 20120706
  Receipt Date: 20120628
  Transmission Date: 20120928
  Serious: No
  Sender: FDA-Public Use
  Company Number: US-BIOGENIDEC-2009BI037207

PATIENT
  Sex: Female

DRUGS (11)
  1. SEROQUEL [Concomitant]
  2. AVONEX [Suspect]
     Route: 030
     Dates: start: 20090101, end: 20091101
  3. VITAMIN TAB [Concomitant]
  4. AVONEX [Suspect]
     Indication: MULTIPLE SCLEROSIS
     Route: 030
  5. AVONEX [Suspect]
     Route: 030
     Dates: start: 20090101, end: 20090101
  6. AVONEX [Suspect]
     Route: 030
     Dates: start: 20090117
  7. SYNTHROID [Concomitant]
     Indication: THYROID DISORDER
  8. AVONEX [Suspect]
     Route: 030
     Dates: start: 20031007, end: 20040331
  9. PERCOCET [Concomitant]
     Indication: BACK PAIN
  10. KLONOPIN [Concomitant]
     Indication: ANXIETY
  11. PROZAC [Concomitant]

REACTIONS (19)
  - INDIFFERENCE [None]
  - SUBSTANCE USE [None]
  - THYROID FUNCTION TEST ABNORMAL [None]
  - TEMPERATURE INTOLERANCE [None]
  - ASTHENIA [None]
  - ALOPECIA [None]
  - WEIGHT DECREASED [None]
  - MENOPAUSE [None]
  - BONE DENSITY DECREASED [None]
  - VISUAL FIELD DEFECT [None]
  - FALL [None]
  - PERSONALITY DISORDER [None]
  - MEMORY IMPAIRMENT [None]
  - ALCOHOL PROBLEM [None]
  - CRYING [None]
  - COGNITIVE DISORDER [None]
  - INFLUENZA LIKE ILLNESS [None]
  - WOUND INFECTION [None]
  - FATIGUE [None]
